FAERS Safety Report 8558213-3 (Version None)
Quarter: 2012Q3

REPORT INFORMATION
  Report Type: 
  Country: None (occurrence: None)
  Receive Date: 20120801
  Receipt Date: 20120719
  Transmission Date: 20120928
  Serious: No
  Sender: FDA-Public Use
  Company Number: US-ASTRAZENECA-2012SE51334

PATIENT
  Age: 70 Year
  Sex: Female

DRUGS (7)
  1. NEXIUM [Suspect]
     Route: 048
  2. XANAX [Concomitant]
  3. DICYCLOMINE [Concomitant]
  4. PEPCID [Concomitant]
  5. METOPROLOL TARTRATE [Concomitant]
  6. AMPHETAMINES [Concomitant]
  7. OXYGEN [Concomitant]

REACTIONS (2)
  - ADVERSE EVENT [None]
  - HYPERTENSION [None]
